FAERS Safety Report 7909565-6 (Version None)
Quarter: 2011Q4

REPORT INFORMATION
  Report Type: 
  Country: None (occurrence: None)
  Receive Date: 20111111
  Receipt Date: 20110817
  Transmission Date: 20120403
  Serious: Yes (Death, Hospitalization)
  Sender: FDA-Public Use
  Company Number: PHHY2011DK32103

PATIENT
  Sex: Male

DRUGS (3)
  1. OPTIRAY 160 [Suspect]
     Indication: COMPUTERISED TOMOGRAM
     Dates: start: 20100804
  2. OPTIRAY 160 [Suspect]
     Dosage: UNK
     Dates: start: 20100804
  3. RAMIPRIL [Suspect]

REACTIONS (9)
  - RENAL FAILURE [None]
  - PLEURAL EFFUSION [None]
  - NEOPLASM PROGRESSION [None]
  - EMOTIONAL DISTRESS [None]
  - OLIGURIA [None]
  - RENAL CANCER [None]
  - INTERNATIONAL NORMALISED RATIO INCREASED [None]
  - BLOOD CREATININE INCREASED [None]
  - PNEUMONIA [None]
